FAERS Safety Report 6441504-X (Version None)
Quarter: 2009Q4

REPORT INFORMATION
  Report Type: 
  Country: None (occurrence: None)
  Receive Date: 20091116
  Receipt Date: 20091106
  Transmission Date: 20100525
  Serious: Yes (Hospitalization)
  Sender: FDA-Public Use
  Company Number: B0602456A

PATIENT
  Age: 67 Year
  Sex: Male
  Weight: 77 kg

DRUGS (10)
  1. ZELITREX [Suspect]
     Dosage: 1G THREE TIMES PER DAY
     Route: 048
     Dates: start: 20090910
  2. PLAVIX [Concomitant]
     Route: 048
     Dates: start: 20040101
  3. COAPROVEL [Concomitant]
     Route: 065
  4. MANIDIPINE HYDROCHLORIDE [Concomitant]
     Route: 065
  5. IKOREL [Concomitant]
     Route: 065
  6. NOVONORM [Concomitant]
     Route: 065
  7. DIAMICRON [Concomitant]
     Route: 065
  8. TAHOR [Concomitant]
     Route: 065
  9. OMEPRAZOLE [Concomitant]
     Route: 065
  10. DETENSIEL [Concomitant]
     Route: 065

REACTIONS (6)
  - BLOOD PRESSURE INCREASED [None]
  - CRYSTALLURIA [None]
  - HYPERKALAEMIA [None]
  - OEDEMA PERIPHERAL [None]
  - OFF LABEL USE [None]
  - RENAL FAILURE ACUTE [None]
